FAERS Safety Report 18048584 (Version 3)
Quarter: 2020Q3

REPORT INFORMATION
  Report Type: Report from Study
  Country: BR (occurrence: BR)
  Receive Date: 20200721
  Receipt Date: 20200907
  Transmission Date: 20201103
  Serious: Yes (Hospitalization, Other)
  Sender: FDA-Public Use
  Company Number: BR-GLAXOSMITHKLINE-BR2020122283

PATIENT
  Age: 66 Year
  Sex: Female

DRUGS (3)
  1. DIOVAN [Suspect]
     Active Substance: VALSARTAN
     Indication: PRODUCT USED FOR UNKNOWN INDICATION
     Dosage: 1 DF, BID  (IN THE MORNING AND IN THE NIGHT BEFORE LYING DOWN, TWO YEARS AGO)
     Route: 065
  2. DICLOFENAC [Suspect]
     Active Substance: DICLOFENAC
     Indication: PRODUCT USED FOR UNKNOWN INDICATION
     Dosage: UNK
     Route: 065
  3. ROSUVASTATIN CALCIUM. [Suspect]
     Active Substance: ROSUVASTATIN CALCIUM
     Indication: PRODUCT USED FOR UNKNOWN INDICATION
     Dosage: 10 MG, CONT CONTINUOUS, SINCE WILL BE 3 YEARS)
     Route: 065

REACTIONS (29)
  - Aphasia [Unknown]
  - Adverse drug reaction [Unknown]
  - Headache [Recovered/Resolved]
  - Head discomfort [Recovering/Resolving]
  - Grip strength decreased [Recovered/Resolved]
  - Disorientation [Unknown]
  - Blood pressure increased [Unknown]
  - Tachycardia [Unknown]
  - Osteoarthritis [Not Recovered/Not Resolved]
  - Drug effect less than expected [Unknown]
  - Bursitis [Not Recovered/Not Resolved]
  - Tendon rupture [Not Recovered/Not Resolved]
  - Pain in extremity [Unknown]
  - Thyroid disorder [Unknown]
  - Tension [Unknown]
  - Asthenia [Unknown]
  - Illness [Recovered/Resolved]
  - Blood glucose increased [Unknown]
  - Tendon disorder [Not Recovered/Not Resolved]
  - Stress [Unknown]
  - Hallucination [Recovered/Resolved]
  - Drug dependence [Unknown]
  - Cerebrovascular accident [Unknown]
  - Renal disorder [Unknown]
  - Emotional disorder [Unknown]
  - Balance disorder [Unknown]
  - Nervousness [Unknown]
  - Pain [Unknown]
  - Memory impairment [Unknown]

NARRATIVE: CASE EVENT DATE: 2020
